FAERS Safety Report 6039136-0 (Version None)
Quarter: 2009Q1

REPORT INFORMATION
  Report Type: 
  Country: None (occurrence: None)
  Receive Date: 20090115
  Receipt Date: 20090106
  Transmission Date: 20090719
  Serious: Yes (Death, Hospitalization)
  Sender: FDA-Public Use
  Company Number: FR-ROCHE-606588

PATIENT
  Sex: Female

DRUGS (7)
  1. ROCEPHIN [Suspect]
     Indication: DRUG USE FOR UNKNOWN INDICATION
     Route: 030
     Dates: start: 20080530, end: 20080602
  2. PREVISCAN [Interacting]
     Indication: DRUG USE FOR UNKNOWN INDICATION
     Dosage: DOSAGE REGIMEN: 0.5 DOSES Q.
     Route: 048
     Dates: end: 20080602
  3. NOCTAMIDE [Concomitant]
     Route: 048
  4. TRIATEC [Concomitant]
     Dosage: DRUG NAME: TRIATEC 1.25 MG
     Route: 048
  5. DIGITALINE NATIVELLE [Concomitant]
     Route: 048
  6. LASILIX 40 [Concomitant]
     Route: 048
  7. ALDACTAZINE [Concomitant]
     Route: 048

REACTIONS (2)
  - DRUG INTERACTION [None]
  - SUBDURAL HAEMATOMA [None]
